FAERS Safety Report 8943678 (Version 2)
Quarter: 2012Q4

REPORT INFORMATION
  Report Type: 
  Country: US (occurrence: US)
  Receive Date: 20121204
  Receipt Date: 20121211
  Transmission Date: 20130627
  Serious: No
  Sender: FDA-Public Use
  Company Number: US-BAYER-2012-124919

PATIENT
  Age: 76 Year
  Sex: Male
  Weight: 82.54 kg

DRUGS (9)
  1. ALEVE CAPLET/TABLET,MIDOL EXTENDED RELIEF CAPLET [Suspect]
     Dosage: 6 DF, QD
     Route: 048
     Dates: end: 201211
  2. MULTIVITAMIN [Concomitant]
  3. CALCIUM [Concomitant]
  4. GLUCOSAMINE [Concomitant]
  5. ASPIRIN [Concomitant]
  6. METFORMIN [Concomitant]
     Dosage: 500 mg, BID
  7. SIMVASTATIN [Concomitant]
     Dosage: UNK UNK, QD
  8. TUMS [CALCIUM CARBONATE] [Concomitant]
     Indication: ABDOMINAL PAIN
  9. PEPTO BISMOL [Concomitant]
     Indication: ABDOMINAL PAIN

REACTIONS (4)
  - Abdominal pain lower [Not Recovered/Not Resolved]
  - Overdose [None]
  - Incorrect drug administration duration [None]
  - Drug ineffective [None]
